FAERS Safety Report 24914958 (Version 1)
Quarter: 2025Q1

REPORT INFORMATION
  Report Type: Spontaneous
  Country: US (occurrence: US)
  Receive Date: 20250203
  Receipt Date: 20250203
  Transmission Date: 20250409
  Serious: Yes (Death, Other)
  Sender: TAIHO ONCOLOGY INC
  Company Number: US-TAIHOP-2025-001036

PATIENT

DRUGS (1)
  1. LYTGOBI [Suspect]
     Active Substance: FUTIBATINIB
     Indication: Product used for unknown indication
     Route: 048

REACTIONS (5)
  - Death [Fatal]
  - Skin necrosis [Unknown]
  - Calciphylaxis [Unknown]
  - Hyperphosphataemia [Unknown]
  - Hypercalcaemia [Not Recovered/Not Resolved]
